FAERS Safety Report 6531723-6 (Version None)
Quarter: 2009Q4

REPORT INFORMATION
  Report Type: 
  Country: None (occurrence: None)
  Receive Date: 20091222
  Receipt Date: 20091117
  Transmission Date: 20100525
  Serious: No
  Sender: FDA-Public Use
  Company Number: ALL1-2009-03696

PATIENT
  Age: 7 Year
  Sex: Male
  Weight: 28.6 kg

DRUGS (4)
  1. VYVANSE [Suspect]
     Indication: ATTENTION DEFICIT/HYPERACTIVITY DISORDER
     Dosage: 20 MG, 1X/DAY:QD, ORAL ; 30 MG, 1X/DAY:QD, ORAL
     Route: 048
     Dates: start: 20090915, end: 20091014
  2. VYVANSE [Suspect]
     Indication: ATTENTION DEFICIT/HYPERACTIVITY DISORDER
     Dosage: 20 MG, 1X/DAY:QD, ORAL ; 30 MG, 1X/DAY:QD, ORAL
     Route: 048
     Dates: start: 20091015, end: 20091016
  3. ZYRTEC [Concomitant]
  4. NASACORT [Concomitant]

REACTIONS (4)
  - IMPULSIVE BEHAVIOUR [None]
  - TIC [None]
  - TRICHOTILLOMANIA [None]
  - WEIGHT DECREASED [None]
